FAERS Safety Report 15812032 (Version 1)
Quarter: 2019Q1

REPORT INFORMATION
  Report Type: Spontaneous
  Country: US (occurrence: US)
  Receive Date: 20190110
  Receipt Date: 20190110
  Transmission Date: 20190417
  Serious: Yes (Other)
  Sender: FDA-Public Use
  Company Number: None

PATIENT
  Age: 50 Year
  Sex: Female
  Weight: 59.4 kg

DRUGS (2)
  1. EFFEXOR [Suspect]
     Active Substance: VENLAFAXINE HYDROCHLORIDE
     Indication: PREMENSTRUAL SYNDROME
     Dosage: ?          QUANTITY:1 CAPSULE(S);OTHER ROUTE:SWALLOWED BEADS PER INSTR?
  2. EFFEXOR [Suspect]
     Active Substance: VENLAFAXINE HYDROCHLORIDE
     Indication: STRESS
     Dosage: ?          QUANTITY:1 CAPSULE(S);OTHER ROUTE:SWALLOWED BEADS PER INSTR?

REACTIONS (6)
  - Nerve compression [None]
  - Malaise [None]
  - Concussion [None]
  - Urinary retention [None]
  - Neck injury [None]
  - Urinary tract infection [None]

NARRATIVE: CASE EVENT DATE: 20180829
